FAERS Safety Report 8194425-9 (Version None)
Quarter: 2012Q1

REPORT INFORMATION
  Report Type: 
  Country: None (occurrence: None)
  Receive Date: 20120308
  Receipt Date: 20120222
  Transmission Date: 20120608
  Serious: Yes (Other)
  Sender: FDA-Public Use
  Company Number: GB-PFIZER INC-2012056856

PATIENT
  Age: 58 Year
  Sex: Male

DRUGS (2)
  1. CALCIPOTRIOL [Concomitant]
     Dosage: UNK
  2. ATORVASTATIN [Suspect]
     Dosage: 20 MG, UNK

REACTIONS (1)
  - THROMBOTIC THROMBOCYTOPENIC PURPURA [None]
